FAERS Safety Report 5279699-6 (Version None)
Quarter: 2007Q1

REPORT INFORMATION
  Report Type: 
  Country: None (occurrence: None)
  Receive Date: 20070323
  Receipt Date: 20070314
  Transmission Date: 20070707
  Serious: Yes (Hospitalization)
  Sender: FDA-Public Use
  Company Number: MEDI-0005365

PATIENT
  Age: 48 Year
  Sex: Male
  Weight: 149.9 kg

DRUGS (15)
  1. ETHYOL [Suspect]
     Indication: RADIOTHERAPY
     Dosage: SEE IMAGE
     Route: 058
     Dates: start: 20070117, end: 20070117
  2. ETHYOL [Suspect]
     Indication: RADIOTHERAPY
     Dosage: SEE IMAGE
     Route: 058
     Dates: start: 20070119, end: 20070119
  3. ETHYOL [Suspect]
     Indication: RADIOTHERAPY
     Dosage: SEE IMAGE
     Route: 058
     Dates: start: 20070123, end: 20070123
  4. ETHYOL [Suspect]
     Indication: RADIOTHERAPY
     Dosage: SEE IMAGE
     Route: 058
     Dates: start: 20070129, end: 20070129
  5. RADIATION THERAPY [Concomitant]
  6. UNKNOWN CHEMOTHERAPY DRUG [Concomitant]
  7. COMPAZINE [Concomitant]
  8. MORPHINE ER (MORPHINE) [Concomitant]
  9. REGLAN [Concomitant]
  10. PREVACID [Concomitant]
  11. VICODIN [Concomitant]
  12. OXYCODONE HCL [Concomitant]
  13. CARAFATE [Concomitant]
  14. LEVAQUIN [Concomitant]
  15. METRONIDAZOLE [Concomitant]

REACTIONS (13)
  - ABDOMINAL WALL ABSCESS [None]
  - ASTHENIA [None]
  - CELLULITIS [None]
  - CHILLS [None]
  - DEHYDRATION [None]
  - ELECTROLYTE IMBALANCE [None]
  - FEEDING TUBE COMPLICATION [None]
  - HYPOTENSION [None]
  - LETHARGY [None]
  - NAUSEA [None]
  - PYREXIA [None]
  - SEPSIS [None]
  - VOMITING [None]
